FAERS Safety Report 21001215 (Version 1)
Quarter: 2022Q2

REPORT INFORMATION
  Report Type: Spontaneous
  Country: US (occurrence: US)
  Receive Date: 20220624
  Receipt Date: 20220624
  Transmission Date: 20220720
  Serious: No
  Sender: FDA-Public Use
  Company Number: US-BioHaven Pharmaceuticals-2022BHV000845

PATIENT
  Age: 46 Year
  Sex: Female
  Weight: 76.272 kg

DRUGS (1)
  1. NURTEC ODT [Suspect]
     Active Substance: RIMEGEPANT SULFATE
     Indication: Migraine prophylaxis
     Dosage: 1 ODT/ WHITE ODT / EVERY OTHER DAY, OCCASIONALLY USES FOR ACUTE TREATMENT AS WELL
     Route: 048
     Dates: start: 2022

REACTIONS (6)
  - Pruritus [Not Recovered/Not Resolved]
  - Urticaria [Not Recovered/Not Resolved]
  - Contusion [Unknown]
  - Skin ulcer [Unknown]
  - Therapeutic product effect incomplete [Unknown]
  - Hypersensitivity [Unknown]

NARRATIVE: CASE EVENT DATE: 20220101
